FAERS Safety Report 20083249 (Version 1)
Quarter: 2021Q4

REPORT INFORMATION
  Report Type: Spontaneous
  Country: DE (occurrence: DE)
  Receive Date: 20211117
  Receipt Date: 20211117
  Transmission Date: 20220303
  Serious: Yes (Hospitalization)
  Sender: FDA-Public Use
  Company Number: DE-ADRED-07164-01

PATIENT
  Age: 75 Year
  Sex: Male
  Weight: 90 kg

DRUGS (16)
  1. HYDROCORTISONE [Suspect]
     Active Substance: HYDROCORTISONE
     Indication: Product used for unknown indication
     Dosage: 10 MILLIGRAM, (2-0-1-0)
  2. INSULIN GLARGINE [Concomitant]
     Active Substance: INSULIN GLARGINE
     Dosage: UNK (SCHEMA)
  3. TESTOSTERON                        /00103101/ [Concomitant]
     Dosage: 250 MILLIGRAM, (SCHEMA)
  4. BISOPROLOL [Concomitant]
     Active Substance: BISOPROLOL
     Dosage: 2.5 MILLIGRAM, (1-0-0-0)
  5. PANTOPRAZOLE [Concomitant]
     Active Substance: PANTOPRAZOLE
     Dosage: 40 MILLIGRAM, (1-0-0-0)
  6. CALCIUM ACETATE [Concomitant]
     Active Substance: CALCIUM ACETATE
     Dosage: 950 MILLIGRAM, (0-1-0-0)
  7. ROSUVASTATIN [Concomitant]
     Active Substance: ROSUVASTATIN
     Dosage: 20 MILLIGRAM, (0-0-1-0)
  8. LEVOTHYROXINE [Concomitant]
     Active Substance: LEVOTHYROXINE
     Dosage: 200 ?G, 1-0-0-0
  9. RAMIPRIL [Concomitant]
     Active Substance: RAMIPRIL
     Dosage: 5 MILLIGRAM, (1-0-0-0)
  10. TORSEMIDE [Concomitant]
     Active Substance: TORSEMIDE
     Dosage: 200 MILLIGRAM, (SCHEMA)
  11. CLOPIDOGREL [Concomitant]
     Active Substance: CLOPIDOGREL BISULFATE
     Dosage: 75 MILLIGRAM, (1-0-0-0)
  12. INSULIN LISPRO [Concomitant]
     Active Substance: INSULIN LISPRO
     Dosage: SCHEMA
  13. CHOLECALCIFEROL [Concomitant]
     Active Substance: CHOLECALCIFEROL
     Dosage: 20000 IE, SCHEMA
  14. LATANOPROST [Concomitant]
     Active Substance: LATANOPROST
     Dosage: 0-0-1-0
  15. ASPIRIN [Concomitant]
     Active Substance: ASPIRIN
     Dosage: 100 MILLIGRAM, (1-0-0-0)
  16. EPOETIN ALFA [Concomitant]
     Active Substance: ERYTHROPOIETIN
     Dosage: 4000 IE, SCHEMA

REACTIONS (13)
  - Systemic infection [Unknown]
  - Oedema peripheral [Unknown]
  - Electrocardiogram abnormal [Unknown]
  - Hypertension [Unknown]
  - Disorientation [Unknown]
  - General physical health deterioration [Unknown]
  - Tachycardia [Unknown]
  - Anaemia [Unknown]
  - Hyperglycaemia [Unknown]
  - Tachypnoea [Unknown]
  - Renal impairment [Unknown]
  - Condition aggravated [Unknown]
  - Pyrexia [Unknown]
